FAERS Safety Report 5542964-9 (Version None)
Quarter: 2007Q4

REPORT INFORMATION
  Report Type: 
  Country: None (occurrence: None)
  Receive Date: 20071210
  Receipt Date: 20071205
  Transmission Date: 20080405
  Serious: Yes (Hospitalization, Other)
  Sender: FDA-Public Use
  Company Number: US-MERCK-0711USA03626

PATIENT
  Age: 67 Year
  Sex: Male

DRUGS (5)
  1. DECADRON [Suspect]
     Indication: MULTIPLE MYELOMA
     Route: 048
     Dates: start: 20061201, end: 20070501
  2. REVLIMID [Suspect]
     Indication: MULTIPLE MYELOMA
     Route: 048
     Dates: start: 20070117, end: 20070530
  3. FLOMAX (MORNIFLUMATE) [Concomitant]
     Route: 065
  4. ALLOPURINOL [Concomitant]
     Route: 065
  5. PRILOSEC [Concomitant]
     Route: 065

REACTIONS (2)
  - DEEP VEIN THROMBOSIS [None]
  - HIP SURGERY [None]
